FAERS Safety Report 5695159-2 (Version None)
Quarter: 2008Q2

REPORT INFORMATION
  Report Type: 
  Country: None (occurrence: None)
  Receive Date: 20080404
  Receipt Date: 20080325
  Transmission Date: 20081010
  Serious: Yes (Hospitalization, Other)
  Sender: FDA-Public Use
  Company Number: US-PFIZER INC-2008026769

PATIENT
  Sex: Female
  Weight: 50.8 kg

DRUGS (2)
  1. SERTRALINE [Suspect]
     Indication: PANIC ATTACK
  2. TOPAMAX [Concomitant]

REACTIONS (15)
  - BLOOD POTASSIUM DECREASED [None]
  - BLOOD PRESSURE INCREASED [None]
  - CHILLS [None]
  - DEHYDRATION [None]
  - DIARRHOEA [None]
  - DRUG INEFFECTIVE [None]
  - DYSPEPSIA [None]
  - MALAISE [None]
  - MUSCLE TWITCHING [None]
  - NIGHT SWEATS [None]
  - PANIC REACTION [None]
  - POLLAKIURIA [None]
  - SLEEP DISORDER [None]
  - TREMOR [None]
  - WEIGHT DECREASED [None]
